FAERS Safety Report 8986671 (Version 2)
Quarter: 2013Q1

REPORT INFORMATION
  Report Type: Spontaneous
  Country: US (occurrence: None)
  Receive Date: 20121217
  Receipt Date: 20130211
  Transmission Date: 20140127
  Serious: Yes (Death, Other)
  Sender: FDA-Public Use
  Company Number: TPA2012A09690

PATIENT
  Age: 63 Year
  Sex: Female

DRUGS (2)
  1. ACTOS (PIOGLITAZONE HYDROCHLORIDE) [Suspect]
     Indication: TYPE 2 DIABETES MELLITUS
     Dosage: MORE THAN TWELVE MONTHS
     Dates: start: 2005, end: 2008
  2. INSULIN (INSULIN) [Concomitant]

REACTIONS (1)
  - Metastatic carcinoma of the bladder [None]
